FAERS Safety Report 4411358-1 (Version None)
Quarter: 2004Q3

REPORT INFORMATION
  Report Type: 
  Country: None (occurrence: None)
  Receive Date: 20040727
  Receipt Date: 20040714
  Transmission Date: 20050211
  Serious: Yes (Death)
  Sender: FDA-Public Use
  Company Number: CN-2004-028707

PATIENT
  Age: 49 Year
  Sex: Female

DRUGS (2)
  1. ULTRAVIST 300 [Suspect]
     Indication: COMPUTERISED TOMOGRAM
     Dosage: 150 ML, INTRAVENOUS
     Route: 042
     Dates: start: 20040712, end: 20040712
  2. IODINE (IODINE) [Suspect]
     Indication: ALLERGY TEST NEGATIVE
     Dates: start: 20040712, end: 20040712

REACTIONS (6)
  - BLOOD PRESSURE DECREASED [None]
  - DYSPNOEA [None]
  - ERYTHEMA [None]
  - IMPATIENCE [None]
  - LOSS OF CONSCIOUSNESS [None]
  - SHOCK [None]
